FAERS Safety Report 13831580 (Version 1)
Quarter: 2017Q3

REPORT INFORMATION
  Report Type: Report from Study
  Country: US (occurrence: US)
  Receive Date: 20170803
  Receipt Date: 20170803
  Transmission Date: 20171127
  Serious: Yes (Life-Threatening, Hospitalization, Other)
  Sender: FDA-Public Use
  Company Number: US-EISAI MEDICAL RESEARCH-EC-2015-008101

PATIENT
  Age: 79 Year
  Sex: Male
  Weight: 106.7 kg

DRUGS (65)
  1. LORCASERIN [Suspect]
     Active Substance: LORCASERIN HYDROCHLORIDE
     Route: 048
     Dates: start: 20150906, end: 20161113
  2. FENOFIBRATE. [Concomitant]
     Active Substance: FENOFIBRATE
     Route: 048
     Dates: start: 20141029
  3. VENTOLIN HFA [Concomitant]
     Active Substance: ALBUTEROL SULFATE
     Route: 048
     Dates: start: 20141007
  4. ONEXTON [Concomitant]
     Active Substance: BENZOYL PEROXIDE\CLINDAMYCIN PHOSPHATE
  5. CLOBETASOL [Concomitant]
     Active Substance: CLOBETASOL
  6. PRAVASTATIN. [Concomitant]
     Active Substance: PRAVASTATIN
  7. PREVACID [Concomitant]
     Active Substance: LANSOPRAZOLE
  8. AQUAFOR CREAM [Concomitant]
  9. GLYCERYL TRINITRATE [Concomitant]
     Active Substance: NITROGLYCERIN
  10. AMITIZA [Concomitant]
     Active Substance: LUBIPROSTONE
  11. LINZESS [Concomitant]
     Active Substance: LINACLOTIDE
  12. PERCOCET [Concomitant]
     Active Substance: ACETAMINOPHEN\OXYCODONE HYDROCHLORIDE
  13. LORCASERIN [Suspect]
     Active Substance: LORCASERIN HYDROCHLORIDE
     Route: 048
     Dates: start: 20150716, end: 20150828
  14. LORCASERIN [Suspect]
     Active Substance: LORCASERIN HYDROCHLORIDE
     Route: 048
     Dates: start: 20161117, end: 20161130
  15. ALDACTONE [Concomitant]
     Active Substance: SPIRONOLACTONE
     Route: 048
     Dates: start: 20130703
  16. TRETINOIN. [Concomitant]
     Active Substance: TRETINOIN
  17. BENZOYL PEROXIDE. [Concomitant]
     Active Substance: BENZOYL PEROXIDE
  18. LOTRISONE [Concomitant]
     Active Substance: BETAMETHASONE DIPROPIONATE\CLOTRIMAZOLE
  19. ANDROGEL [Concomitant]
     Active Substance: TESTOSTERONE
  20. ZINC OXIDE BARRIER OITMENT [Concomitant]
  21. LIQUID NITROGEN [Concomitant]
     Active Substance: NITROGEN
  22. IBUPROFEN. [Concomitant]
     Active Substance: IBUPROFEN
     Route: 048
     Dates: start: 201410
  23. GLUCOPHAGE [Concomitant]
     Active Substance: METFORMIN HYDROCHLORIDE
     Route: 048
     Dates: start: 20120808
  24. METAPROLOL [Concomitant]
     Active Substance: METOPROLOL
     Route: 048
     Dates: start: 20120808
  25. COENZYME Q10 [Concomitant]
     Active Substance: UBIDECARENONE
  26. MOBIC [Concomitant]
     Active Substance: MELOXICAM
  27. INDOMETHACIN. [Concomitant]
     Active Substance: INDOMETHACIN
  28. LORTISONE CREAM [Concomitant]
  29. ISOSORBIDE MONONITRATE. [Concomitant]
     Active Substance: ISOSORBIDE MONONITRATE
  30. XIFAXAN [Concomitant]
     Active Substance: RIFAXIMIN
  31. SENNA [Concomitant]
     Active Substance: SENNA LEAF\SENNOSIDES\SENNOSIDES A AND B
  32. TRAZODONE [Concomitant]
     Active Substance: TRAZODONE HYDROCHLORIDE
     Route: 048
     Dates: start: 20120808
  33. ISOSORBIDE MONONITRATE. [Concomitant]
     Active Substance: ISOSORBIDE MONONITRATE
     Route: 048
     Dates: start: 20120808
  34. GABAPENTIN. [Concomitant]
     Active Substance: GABAPENTIN
  35. LABETALOL [Concomitant]
     Active Substance: LABETALOL\LABETALOL HYDROCHLORIDE
  36. HYDROCHLOROTHIAZIDE. [Concomitant]
     Active Substance: HYDROCHLOROTHIAZIDE
  37. RANEXA [Concomitant]
     Active Substance: RANOLAZINE
  38. PREVACID [Concomitant]
     Active Substance: LANSOPRAZOLE
  39. TRAMADOL. [Concomitant]
     Active Substance: TRAMADOL
  40. ISOSORBIDE MONONITRATE. [Concomitant]
     Active Substance: ISOSORBIDE MONONITRATE
  41. OMEPRAZOLE. [Concomitant]
     Active Substance: OMEPRAZOLE
     Route: 048
     Dates: start: 20120808
  42. CIPRO [Concomitant]
     Active Substance: CIPROFLOXACIN HYDROCHLORIDE
  43. VALIUM [Concomitant]
     Active Substance: DIAZEPAM
  44. LORCASERIN [Suspect]
     Active Substance: LORCASERIN HYDROCHLORIDE
     Indication: WEIGHT CONTROL
     Route: 048
     Dates: start: 20140814, end: 20150624
  45. ASPIRIN. [Concomitant]
     Active Substance: ASPIRIN
     Route: 048
     Dates: start: 20131008
  46. NEURONTIN [Concomitant]
     Active Substance: GABAPENTIN
     Route: 048
     Dates: start: 20130110
  47. DOXYCYCLINE HYCLATE. [Concomitant]
     Active Substance: DOXYCYCLINE HYCLATE
  48. FLECTOR [Concomitant]
     Active Substance: DICLOFENAC EPOLAMINE
     Indication: WEIGHT CONTROL
  49. FLAGYL [Concomitant]
     Active Substance: METRONIDAZOLE\METRONIDAZOLE HYDROCHLORIDE
  50. DEXILANT [Concomitant]
     Active Substance: DEXLANSOPRAZOLE
  51. MIRALAX [Concomitant]
     Active Substance: POLYETHYLENE GLYCOL 3350
  52. AMITRIPTYLINE HCL [Concomitant]
     Active Substance: AMITRIPTYLINE
  53. PRAVASTATIN. [Concomitant]
     Active Substance: PRAVASTATIN
     Route: 048
     Dates: start: 20150316
  54. NITROSTAT [Concomitant]
     Active Substance: NITROGLYCERIN
     Route: 060
     Dates: start: 20130110
  55. VITAMIN B12 [Concomitant]
     Active Substance: CYANOCOBALAMIN
  56. LIPITOR [Concomitant]
     Active Substance: ATORVASTATIN CALCIUM
  57. NYSTATIN. [Concomitant]
     Active Substance: NYSTATIN
  58. COLACE [Concomitant]
     Active Substance: DOCUSATE SODIUM
  59. SPIRONOLACTONE. [Concomitant]
     Active Substance: SPIRONOLACTONE
  60. DOXYCYCLINE. [Concomitant]
     Active Substance: DOXYCYCLINE
     Route: 048
     Dates: start: 20130703
  61. ACETAMINOPHEN. [Concomitant]
     Active Substance: ACETAMINOPHEN
  62. CLOPIDOGREL [Concomitant]
     Active Substance: CLOPIDOGREL BISULFATE
  63. SPIRONOLACTONE. [Concomitant]
     Active Substance: SPIRONOLACTONE
  64. VICODIN [Concomitant]
     Active Substance: ACETAMINOPHEN\HYDROCODONE BITARTRATE
  65. METOPROLOL SUCCINATE ER [Concomitant]
     Active Substance: METOPROLOL SUCCINATE

REACTIONS (5)
  - Diverticulitis [Recovered/Resolved]
  - Dyspnoea [Recovered/Resolved]
  - Mitral valve incompetence [Not Recovered/Not Resolved]
  - Angina unstable [Recovered/Resolved]
  - Acute coronary syndrome [Recovered/Resolved]

NARRATIVE: CASE EVENT DATE: 20150611
